FAERS Safety Report 15092355 (Version 1)
Quarter: 2018Q2

REPORT INFORMATION
  Report Type: Spontaneous
  Country: FR (occurrence: FR)
  Receive Date: 20180629
  Receipt Date: 20180629
  Transmission Date: 20180711
  Serious: Yes (Other)
  Sender: FDA-Public Use
  Company Number: FR-PFIZER INC-2018259338

PATIENT
  Age: 55 Year
  Sex: Female

DRUGS (3)
  1. LEVOTHYROX [Suspect]
     Active Substance: LEVOTHYROXINE
     Indication: HYPOTHYROIDISM
     Dosage: 137.5 MG, 1X/DAY
     Route: 048
     Dates: start: 201704, end: 20180326
  2. LERCAN [Concomitant]
     Active Substance: LERCANIDIPINE
     Indication: HYPERTENSION
     Dosage: 15 MG, 1X/DAY
     Route: 048
  3. LYRICA [Suspect]
     Active Substance: PREGABALIN
     Indication: PROCEDURAL PAIN
     Dosage: 200 MG, 1X/DAY
     Route: 048
     Dates: start: 201704, end: 201712

REACTIONS (4)
  - Product use in unapproved indication [Recovered/Resolved]
  - Muscle spasms [Recovered/Resolved]
  - Migraine [Recovered/Resolved]
  - Blood thyroid stimulating hormone increased [Recovered/Resolved]

NARRATIVE: CASE EVENT DATE: 201704
